FAERS Safety Report 6069165-2 (Version None)
Quarter: 2009Q1

REPORT INFORMATION
  Report Type: 
  Country: None (occurrence: None)
  Receive Date: 20090206
  Receipt Date: 20090202
  Transmission Date: 20090719
  Serious: Yes (Death)
  Sender: FDA-Public Use
  Company Number: US-CELGENEUS-163-21880-09020147

PATIENT
  Sex: Male

DRUGS (3)
  1. REVLIMID [Suspect]
     Indication: MULTIPLE MYELOMA
     Route: 048
     Dates: start: 20081013
  2. REVLIMID [Suspect]
     Route: 048
     Dates: start: 20080729, end: 20080801
  3. REVLIMID [Suspect]
     Route: 048
     Dates: start: 20071112, end: 20080201

REACTIONS (1)
  - DEATH [None]
